FAERS Safety Report 5299176-6 (Version None)
Quarter: 2007Q2

REPORT INFORMATION
  Report Type: 
  Country: None (occurrence: None)
  Receive Date: 20070417
  Receipt Date: 20070410
  Transmission Date: 20071010
  Serious: Yes (Hospitalization)
  Sender: FDA-Public Use
  Company Number: US-AVENTIS-200712549US

PATIENT
  Age: 74 Year
  Sex: Female

DRUGS (4)
  1. LANTUS [Suspect]
     Dates: start: 20070101
  2. OPTICLIK (INSULIN INJECTION PEN) [Suspect]
  3. GLUCATROL [Concomitant]
     Dosage: DOSE: UNK
  4. ALDACTONE [Concomitant]
     Dosage: DOSE: UNK

REACTIONS (3)
  - ASCITES [None]
  - BLOOD GLUCOSE INCREASED [None]
  - DYSPNOEA [None]
